FAERS Safety Report 20735997 (Version 2)
Quarter: 2022Q2

REPORT INFORMATION
  Report Type: Report from Study
  Country: CA (occurrence: CA)
  Receive Date: 20220421
  Receipt Date: 20220510
  Transmission Date: 20220721
  Serious: Yes (Other)
  Sender: FDA-Public Use
  Company Number: CA-OTSUKA-2021_028229

PATIENT
  Age: 56 Year
  Sex: Female

DRUGS (2)
  1. CEDAZURIDINE\DECITABINE [Suspect]
     Active Substance: CEDAZURIDINE\DECITABINE
     Indication: Myelodysplastic syndrome
     Dosage: QD 1-5 DAYS EVERY 28 DAY CYCLE
     Route: 065
     Dates: start: 20210809
  2. CEDAZURIDINE\DECITABINE [Suspect]
     Active Substance: CEDAZURIDINE\DECITABINE
     Dosage: QD 1-3 DAYS EVERY 28 DAY CYCLE
     Route: 065
     Dates: end: 20220505

REACTIONS (5)
  - Transfusion [Unknown]
  - Incorrect dose administered [Unknown]
  - Product use issue [Unknown]
  - Therapy interrupted [Unknown]
  - Therapy cessation [Unknown]

NARRATIVE: CASE EVENT DATE: 20210809
